FAERS Safety Report 10771463 (Version 1)
Quarter: 2015Q1

REPORT INFORMATION
  Report Type: Spontaneous
  Country: GB (occurrence: GB)
  Receive Date: 20150206
  Receipt Date: 20150206
  Transmission Date: 20150721
  Serious: Yes (Disabling)
  Sender: FDA-Public Use
  Company Number: PHHY2015GB012474

PATIENT
  Age: 2 Year
  Sex: Male
  Weight: 15.3 kg

DRUGS (6)
  1. PEG-L-ASPARAGINASE [Concomitant]
     Active Substance: PEGASPARGASE
     Indication: PRODUCT USED FOR UNKNOWN INDICATION
     Route: 065
  2. DEXAMETASON [Concomitant]
     Active Substance: DEXAMETHASONE
     Indication: PRODUCT USED FOR UNKNOWN INDICATION
     Route: 065
  3. SEPTRIN [Concomitant]
     Active Substance: SULFAMETHOXAZOLE\TRIMETHOPRIM
     Indication: PRODUCT USED FOR UNKNOWN INDICATION
     Route: 065
  4. MERCAPTOPURINE. [Concomitant]
     Active Substance: MERCAPTOPURINE
     Indication: PRODUCT USED FOR UNKNOWN INDICATION
     Route: 065
  5. METHOTREXATE [Suspect]
     Active Substance: METHOTREXATE
     Indication: ACUTE LYMPHOCYTIC LEUKAEMIA
     Route: 037
     Dates: start: 20140624, end: 20140624
  6. VINCRISTINE [Concomitant]
     Active Substance: VINCRISTINE
     Indication: PRODUCT USED FOR UNKNOWN INDICATION
     Route: 065

REACTIONS (6)
  - Encephalopathy [Recovered/Resolved with Sequelae]
  - Hypotonia [Recovering/Resolving]
  - Hypertension [Recovering/Resolving]
  - Hypertonia [Recovering/Resolving]
  - Irritability [Recovering/Resolving]
  - Clonus [Recovering/Resolving]

NARRATIVE: CASE EVENT DATE: 20140718
